FAERS Safety Report 6710656-6 (Version None)
Quarter: 2010Q2

REPORT INFORMATION
  Report Type: 
  Country: None (occurrence: None)
  Receive Date: 20100504
  Receipt Date: 20100504
  Transmission Date: 20101027
  Serious: Yes (Hospitalization)
  Sender: FDA-Public Use
  Company Number: None

PATIENT
  Age: 69 Year
  Sex: Male
  Weight: 57.7 kg

DRUGS (1)
  1. ATOVAQUONE [Suspect]
     Dosage: 750 MG BID PO
     Route: 048
     Dates: start: 20090417, end: 20090421

REACTIONS (1)
  - DIARRHOEA [None]
